FAERS Safety Report 9891844 (Version 4)
Quarter: 2014Q4

REPORT INFORMATION
  Report Type: Spontaneous
  Country: US (occurrence: US)
  Receive Date: 20140212
  Receipt Date: 20141024
  Transmission Date: 20150529
  Serious: Yes (Hospitalization)
  Sender: FDA-Public Use
  Company Number: US-BAYER-2014-022018

PATIENT
  Age: 41 Year
  Sex: Female
  Weight: 90.7 kg

DRUGS (1)
  1. MIRENA [Suspect]
     Active Substance: LEVONORGESTREL
     Indication: CONTRACEPTION
     Dosage: 20 MCG/24HR, CONT
     Route: 015
     Dates: start: 201101, end: 201202

REACTIONS (7)
  - Uterine perforation [None]
  - Injury [None]
  - Medical device complication [None]
  - Procedural pain [Not Recovered/Not Resolved]
  - Abdominal pain [None]
  - Emotional distress [None]
  - Device difficult to use [None]

NARRATIVE: CASE EVENT DATE: 20120202
